FAERS Safety Report 16022823 (Version 3)
Quarter: 2019Q2

REPORT INFORMATION
  Report Type: Spontaneous
  Country: US (occurrence: US)
  Receive Date: 20190301
  Receipt Date: 20190617
  Transmission Date: 20190711
  Serious: No
  Sender: FDA-Public Use
  Company Number: US-PFIZER INC-2019090304

PATIENT
  Age: 68 Year
  Sex: Female

DRUGS (1)
  1. IBRANCE [Suspect]
     Active Substance: PALBOCICLIB
     Indication: BREAST CANCER FEMALE
     Dosage: 125 MG, CYCLIC (TAKE 1 CAPSULE FOR 21 DAYS, THEN 7 DAYS OFF EVERY 28 DAYS)
     Route: 048
     Dates: start: 20190214

REACTIONS (3)
  - Constipation [Unknown]
  - Vitreous floaters [Unknown]
  - Nausea [Unknown]
